FAERS Safety Report 6161417-0 (Version None)
Quarter: 2009Q2

REPORT INFORMATION
  Report Type: 
  Country: None (occurrence: None)
  Receive Date: 20090417
  Receipt Date: 20090417
  Transmission Date: 20091009
  Serious: Yes (Congenital Anomaly)
  Sender: FDA-Public Use
  Company Number: None

PATIENT
  Age: 27 Year
  Sex: Female
  Weight: 58.9676 kg

DRUGS (1)
  1. PROPYLTHIOURACIL [Suspect]
     Indication: BASEDOW'S DISEASE
     Dosage: 5 TABS 3AM   2PM
     Dates: start: 20070101

REACTIONS (2)
  - DRUG EXPOSURE DURING PREGNANCY [None]
  - PREGNANCY [None]
